FAERS Safety Report 13080437 (Version 1)
Quarter: 2017Q1

REPORT INFORMATION
  Report Type: Spontaneous
  Country: RU (occurrence: RU)
  Receive Date: 20170103
  Receipt Date: 20170103
  Transmission Date: 20170428
  Serious: Yes (Other)
  Sender: FDA-Public Use
  Company Number: RU-GLAXOSMITHKLINE-RU2016GSK192477

PATIENT
  Age: 63 Year
  Sex: Male

DRUGS (1)
  1. TAVEGYL [Suspect]
     Active Substance: CLEMASTINE FUMARATE
     Indication: PRODUCT USED FOR UNKNOWN INDICATION
     Dosage: UNK
     Route: 048

REACTIONS (4)
  - Laryngeal oedema [Unknown]
  - Muscle spasms [Unknown]
  - Conjunctivitis [Unknown]
  - Bronchospasm [Unknown]

NARRATIVE: CASE EVENT DATE: 201210
